FAERS Safety Report 22013721 (Version 1)
Quarter: 2023Q1

REPORT INFORMATION
  Report Type: Spontaneous
  Country: CN (occurrence: CN)
  Receive Date: 20230221
  Receipt Date: 20230221
  Transmission Date: 20230417
  Serious: Yes (Hospitalization, Other)
  Sender: FDA-Public Use
  Company Number: None

PATIENT
  Age: 8 Year
  Sex: Male
  Weight: 26 kg

DRUGS (6)
  1. CYCLOPHOSPHAMIDE [Suspect]
     Active Substance: CYCLOPHOSPHAMIDE
     Indication: Clear cell sarcoma of the kidney
     Dosage: 0.85 G, QD (DILUTED WITH (4:1) GLUCOSE SODIUM CHLORIDE INJECTION 250 ML)
     Route: 041
     Dates: start: 20230103, end: 20230103
  2. DEXTROSE\SODIUM CHLORIDE [Suspect]
     Active Substance: DEXTROSE\SODIUM CHLORIDE
     Indication: Medication dilution
     Dosage: 250 ML, QD, DOSAGE FORM: INJECTION (4:1) (USED TO DILUTE CYCLOPHOSPHAMIDE 0.85 G)
     Route: 041
     Dates: start: 20230103, end: 20230103
  3. SODIUM CHLORIDE [Suspect]
     Active Substance: SODIUM CHLORIDE
     Indication: Medication dilution
     Dosage: 50 ML, QD, STRENGTH: 0.9%, DOSAGE FROM: INJECTION (USED TO DILUTE VINDESINE SULFATE 2.2 MG)
     Route: 041
     Dates: start: 20230103, end: 20230103
  4. SODIUM CHLORIDE [Suspect]
     Active Substance: SODIUM CHLORIDE
     Dosage: 250 ML, QD, STRENGTH: 0.9%, DOSAGE FROM: INJECTION (USED TO DILUTE EPIRUBICIN HYDROCHLORIDE 18 MG)
     Route: 041
     Dates: start: 20230103, end: 20230103
  5. EPIRUBICIN [Suspect]
     Active Substance: EPIRUBICIN
     Indication: Clear cell sarcoma of the kidney
     Dosage: 18 MG, QD (DILUTED WITH 0.9% SODIUM CHLORIDE INJECTION 250 ML)
     Route: 041
     Dates: start: 20230103, end: 20230103
  6. VINDESINE SULFATE [Suspect]
     Active Substance: VINDESINE SULFATE
     Indication: Clear cell sarcoma of the kidney
     Dosage: 2.2 MG, QD (DILUTED WITH 0.9% SODIUM CHLORIDE INJECTION 50 ML)
     Route: 041
     Dates: start: 20230103, end: 20230103

REACTIONS (1)
  - Myelosuppression [Recovering/Resolving]

NARRATIVE: CASE EVENT DATE: 20230112
